FAERS Safety Report 9456934 (Version 1)
Quarter: 2013Q3

REPORT INFORMATION
  Report Type: Spontaneous
  Country: US (occurrence: US)
  Receive Date: 20130814
  Receipt Date: 20130814
  Transmission Date: 20140515
  Serious: Yes (Other)
  Sender: FDA-Public Use
  Company Number: US-B.I. PHARMACEUTICALS,INC./RIDGEFIELD-2013-BI-24134BP

PATIENT
  Age: 88 Year
  Sex: Female
  Weight: 79 kg

DRUGS (2)
  1. PRADAXA [Suspect]
     Indication: ATRIAL FIBRILLATION
     Dosage: 300 MG
     Route: 048
     Dates: end: 2013
  2. VERAPAMIL [Concomitant]
     Dates: end: 2013

REACTIONS (1)
  - Stevens-Johnson syndrome [Unknown]
